FAERS Safety Report 15884473 (Version 1)
Quarter: 2019Q1

REPORT INFORMATION
  Report Type: Spontaneous
  Country: US (occurrence: US)
  Receive Date: 20190129
  Receipt Date: 20190129
  Transmission Date: 20190417
  Serious: Yes (Hospitalization)
  Sender: FDA-Public Use
  Company Number: None

PATIENT
  Sex: Female

DRUGS (9)
  1. SIMVASTATIN. [Concomitant]
     Active Substance: SIMVASTATIN
  2. HUMIRA [Suspect]
     Active Substance: ADALIMUMAB
     Indication: PSORIASIS
     Dosage: ?          OTHER FREQUENCY:QOW;?
     Route: 058
     Dates: start: 20180317
  3. FLUTICASONE. [Concomitant]
     Active Substance: FLUTICASONE
  4. ELIQUIS [Concomitant]
     Active Substance: APIXABAN
  5. RANITIDINE. [Concomitant]
     Active Substance: RANITIDINE
  6. BUMETANIDE. [Concomitant]
     Active Substance: BUMETANIDE
  7. OPSUMIT [Concomitant]
     Active Substance: MACITENTAN
  8. PROLIA [Concomitant]
     Active Substance: DENOSUMAB
  9. POT CHLORIDE [Concomitant]
     Active Substance: POTASSIUM CHLORIDE

REACTIONS (1)
  - Apparent death [None]
